FAERS Safety Report 12610979 (Version 3)
Quarter: 2017Q2

REPORT INFORMATION
  Report Type: Spontaneous
  Country: US (occurrence: US)
  Receive Date: 20160801
  Receipt Date: 20170426
  Transmission Date: 20170830
  Serious: No
  Sender: FDA-Public Use
  Company Number: US-PFIZER INC-2016361428

PATIENT
  Age: 71 Year
  Sex: Female

DRUGS (8)
  1. ASTAXANTHIN [Concomitant]
     Dosage: UNK
  2. CURCUMIN [Concomitant]
     Active Substance: CURCUMIN
     Dosage: UNK
  3. ASPIRIN. [Concomitant]
     Active Substance: ASPIRIN
     Dosage: UNK
  4. FASLODEX [Concomitant]
     Active Substance: FULVESTRANT
     Dosage: UNK
  5. RANITIDINE. [Concomitant]
     Active Substance: RANITIDINE
     Dosage: UNK
  6. CALCIUM CITRATE [Concomitant]
     Active Substance: CALCIUM CITRATE
     Dosage: UNK
  7. MULTIVITAMINS [Concomitant]
     Active Substance: VITAMINS
     Dosage: UNK
  8. IBRANCE [Suspect]
     Active Substance: PALBOCICLIB
     Indication: BREAST CANCER FEMALE
     Dosage: 100 MG, CYCLIC (EVERY DAY FOR 21 DAYS ON AND THEN TAKE DAYS OFF)
     Dates: start: 20160426

REACTIONS (2)
  - Viral infection [Unknown]
  - White blood cell count decreased [Unknown]
